FAERS Safety Report 6610424-X (Version None)
Quarter: 2010Q1

REPORT INFORMATION
  Report Type: 
  Country: None (occurrence: None)
  Receive Date: 20100302
  Receipt Date: 20100223
  Transmission Date: 20100710
  Serious: Yes (Other)
  Sender: FDA-Public Use
  Company Number: MX-BAYER-201011794LA

PATIENT
  Age: 25 Year
  Sex: Female

DRUGS (1)
  1. YASMIN [Suspect]
     Indication: CONTRACEPTION
     Route: 048

REACTIONS (3)
  - ABDOMINAL PAIN [None]
  - ABDOMINAL PAIN UPPER [None]
  - DIARRHOEA HAEMORRHAGIC [None]
